FAERS Safety Report 5286850-0 (Version None)
Quarter: 2007Q1

REPORT INFORMATION
  Report Type: 
  Country: None (occurrence: None)
  Receive Date: 20070329
  Receipt Date: 20070314
  Transmission Date: 20070707
  Serious: Yes (Hospitalization)
  Sender: FDA-Public Use
  Company Number: B0415196A

PATIENT
  Age: 55 Year
  Sex: Male
  Weight: 61.8706 kg

DRUGS (2)
  1. ZOVIRAX [Suspect]
     Indication: HERPES ZOSTER
     Dosage: INTRAVENOUS INFUSION
     Route: 042
     Dates: start: 20060227, end: 20060304
  2. TACROLIMUS [Concomitant]

REACTIONS (4)
  - DEHYDRATION [None]
  - HAEMODIALYSIS [None]
  - ORAL INTAKE REDUCED [None]
  - RENAL FAILURE ACUTE [None]
